FAERS Safety Report 7723032-4 (Version None)
Quarter: 2011Q3

REPORT INFORMATION
  Report Type: 
  Country: None (occurrence: None)
  Receive Date: 20110901
  Receipt Date: 20110823
  Transmission Date: 20111222
  Serious: Yes (Other)
  Sender: FDA-Public Use
  Company Number: GB-ELI_LILLY_AND_COMPANY-GB201108007248

PATIENT
  Age: 80 Year
  Sex: Female

DRUGS (5)
  1. HUMULIN 70/30 [Suspect]
     Dosage: 42 IU, OTHER
     Dates: start: 20110501, end: 20110801
  2. HUMULIN 70/30 [Suspect]
     Dosage: 56 IU, UNK
     Dates: start: 20110801
  3. LANTUS [Concomitant]
     Dosage: UNK
  4. HUMULIN 70/30 [Suspect]
     Dosage: 38 IU, OTHER
     Dates: start: 20110801
  5. HUMULIN 70/30 [Suspect]
     Dosage: 60 IU, EACH MORNING
     Dates: start: 20110501, end: 20110801

REACTIONS (3)
  - MALAISE [None]
  - HYPOGLYCAEMIA [None]
  - BLINDNESS UNILATERAL [None]
